FAERS Safety Report 17824016 (Version 1)
Quarter: 2020Q2

REPORT INFORMATION
  Report Type: Spontaneous
  Country: US (occurrence: US)
  Receive Date: 20200526
  Receipt Date: 20200526
  Transmission Date: 20200714
  Serious: Yes (Disabling)
  Sender: FDA-Public Use
  Company Number: None

PATIENT
  Age: 68 Year
  Sex: Male
  Weight: 89.1 kg

DRUGS (6)
  1. KEPPRA XR [Concomitant]
     Active Substance: LEVETIRACETAM
  2. LAMOTRIGINE. [Suspect]
     Active Substance: LAMOTRIGINE
     Indication: SEIZURE
     Dosage: ?          QUANTITY:1 TABLET(S);?
     Route: 048
     Dates: start: 20200503, end: 20200524
  3. OMEPRAZOLE. [Concomitant]
     Active Substance: OMEPRAZOLE
  4. ATORVASTIN [Concomitant]
     Active Substance: ATORVASTATIN
  5. COLACE [Concomitant]
     Active Substance: DOCUSATE SODIUM
  6. ASPIRIN. [Concomitant]
     Active Substance: ASPIRIN

REACTIONS (5)
  - Visual impairment [None]
  - Drooling [None]
  - Confusional state [None]
  - Gait disturbance [None]
  - Product substitution issue [None]

NARRATIVE: CASE EVENT DATE: 20200524
